FAERS Safety Report 4657910-X (Version None)
Quarter: 2005Q2

REPORT INFORMATION
  Report Type: 
  Country: None (occurrence: None)
  Receive Date: 20050510
  Receipt Date: 20050429
  Transmission Date: 20051028
  Serious: Yes (Hospitalization)
  Sender: FDA-Public Use
  Company Number: US-ROCHE-403639

PATIENT
  Age: 47 Year
  Sex: Male
  Weight: 95.3 kg

DRUGS (4)
  1. PEGASYS [Suspect]
     Indication: HEPATITIS C
     Dosage: DOSAGE REGIMEN: 180 MCG PER WEEK STRENGTH: 180 MCG/0.5ML.
     Route: 058
     Dates: start: 20040813
  2. COPEGUS [Suspect]
     Indication: HEPATITIS C
     Route: 048
     Dates: start: 20040813
  3. HUMALOG [Concomitant]
     Route: 058
  4. LANTUS [Concomitant]
     Route: 058

REACTIONS (5)
  - AGITATION [None]
  - CSF WHITE BLOOD CELL COUNT POSITIVE [None]
  - INFLAMMATION [None]
  - MIGRAINE [None]
  - WEIGHT DECREASED [None]
